FAERS Safety Report 12351919 (Version 1)
Quarter: 2016Q2

REPORT INFORMATION
  Report Type: Spontaneous
  Country: US (occurrence: US)
  Receive Date: 20160510
  Receipt Date: 20160510
  Transmission Date: 20160815
  Serious: Yes (Hospitalization)
  Sender: FDA-Public Use
  Company Number: US-CELGENEUS-USA-2016051445

PATIENT
  Sex: Male
  Weight: 109.87 kg

DRUGS (1)
  1. REVLIMID [Suspect]
     Active Substance: LENALIDOMIDE
     Indication: PLASMA CELL MYELOMA
     Dosage: 15 MILLIGRAM
     Route: 048
     Dates: start: 20150604

REACTIONS (4)
  - Myocardial infarction [Recovered/Resolved]
  - Peripheral swelling [Recovered/Resolved]
  - Mouth haemorrhage [Recovered/Resolved]
  - Pulmonary embolism [Recovered/Resolved]
